FAERS Safety Report 19086951 (Version 1)
Quarter: 2021Q2

REPORT INFORMATION
  Report Type: Spontaneous
  Country: US (occurrence: US)
  Receive Date: 20210402
  Receipt Date: 20210402
  Transmission Date: 20210717
  Serious: No
  Sender: FDA-Public Use
  Company Number: US-SUNOVION-2021SUN001027

PATIENT
  Sex: Female
  Weight: 68.21 kg

DRUGS (13)
  1. LATUDA [Suspect]
     Active Substance: LURASIDONE HYDROCHLORIDE
     Indication: AFFECTIVE DISORDER
     Dosage: 20 MG, QD
     Route: 048
     Dates: start: 20210224
  2. SINGULAIR [Concomitant]
     Active Substance: MONTELUKAST SODIUM
     Dosage: 10 MG, QD
     Route: 048
     Dates: start: 20191209
  3. REMERON [Suspect]
     Active Substance: MIRTAZAPINE
     Indication: INSOMNIA
     Dosage: 15 MG, HS
     Route: 048
     Dates: start: 20210224
  4. BACTRIM DS [Concomitant]
     Active Substance: SULFAMETHOXAZOLE\TRIMETHOPRIM
     Dosage: UNK, EVERY 12HRS
     Route: 048
  5. CYMBALTA [Suspect]
     Active Substance: DULOXETINE HYDROCHLORIDE
     Indication: ANXIETY
     Dosage: 60MG, BID
     Route: 048
     Dates: start: 20210224
  6. PEPCID [Concomitant]
     Active Substance: FAMOTIDINE
     Dosage: 40MG, HS
     Route: 048
     Dates: start: 20191209
  7. MUPIROCIN. [Concomitant]
     Active Substance: MUPIROCIN
     Dosage: 2%, TID
     Route: 061
  8. BUSPIRONE [Concomitant]
     Active Substance: BUSPIRONE HYDROCHLORIDE
     Dosage: 15 MG, QD
     Route: 048
  9. ALBUTEROL SULFATE. [Concomitant]
     Active Substance: ALBUTEROL SULFATE
     Dosage: 2.5MG/3 ML, TID
     Route: 055
     Dates: start: 20190829
  10. PROAIR HFA [Concomitant]
     Active Substance: ALBUTEROL SULFATE
     Dosage: 90 ?G, AS NECESSARY
     Route: 055
     Dates: start: 20191211
  11. ATORVASTATIN [Concomitant]
     Active Substance: ATORVASTATIN
     Dosage: 80 MG, QD
     Route: 048
     Dates: start: 20200410
  12. GENTAMICIN. [Concomitant]
     Active Substance: GENTAMICIN
     Dosage: .3 %, EVERY 6HRS
     Route: 047
  13. BLACK COHOSH [Concomitant]
     Active Substance: BLACK COHOSH

REACTIONS (6)
  - Alcohol use disorder [Unknown]
  - Off label use [Unknown]
  - Anxiety [Unknown]
  - Decreased appetite [Unknown]
  - Depression [Unknown]
  - Poor quality sleep [Unknown]
